FAERS Safety Report 9115281 (Version 2)
Quarter: 2013Q1

REPORT INFORMATION
  Report Type: Spontaneous
  Country: US (occurrence: US)
  Receive Date: 20130225
  Receipt Date: 20130306
  Transmission Date: 20140127
  Serious: Yes (Hospitalization)
  Sender: FDA-Public Use
  Company Number: US-ROCHE-1194382

PATIENT
  Age: 30 Year
  Sex: Male

DRUGS (17)
  1. XOLAIR [Suspect]
     Indication: PRODUCT USED FOR UNKNOWN INDICATION
     Dosage: 1 DOSE
     Route: 065
     Dates: start: 20121219
  2. BACLOFEN [Concomitant]
     Indication: PAIN
     Route: 065
  3. ATIVAN [Concomitant]
     Route: 065
  4. TESSALON PERLES [Concomitant]
     Indication: COUGH
     Route: 065
  5. VITAMIN B12 [Concomitant]
  6. FLEXERIL [Concomitant]
     Route: 065
  7. PRINIVIL [Concomitant]
     Route: 065
  8. SINGULAIR [Concomitant]
     Route: 065
  9. CARAFATE [Concomitant]
     Route: 065
  10. QVAR [Concomitant]
     Dosage: 2 PUFFS
     Route: 065
  11. CLARITIN [Concomitant]
     Route: 065
  12. ADVAIR [Concomitant]
     Dosage: 500/50 3 PUFFS
     Route: 065
  13. ALBUTEROL [Concomitant]
     Route: 065
  14. EPIPEN [Concomitant]
     Dosage: ON HAND/XOLAIR
     Route: 065
  15. XOPENEX [Concomitant]
     Dosage: NEBULISER
     Route: 065
  16. PRED [Concomitant]
     Route: 050
  17. PRED [Concomitant]
     Route: 050

REACTIONS (3)
  - Asthma [Unknown]
  - Influenza [Unknown]
  - Painful respiration [Unknown]
